FAERS Safety Report 5464783-4 (Version None)
Quarter: 2007Q3

REPORT INFORMATION
  Report Type: 
  Country: None (occurrence: None)
  Receive Date: 20070921
  Receipt Date: 20070913
  Transmission Date: 20080115
  Serious: Yes (Other)
  Sender: FDA-Public Use
  Company Number: AU-PFIZER INC-2007071621

PATIENT
  Sex: Male

DRUGS (2)
  1. SUTENT [Suspect]
     Route: 048
  2. NEXIUM [Concomitant]
     Route: 048

REACTIONS (9)
  - ASCITES [None]
  - DIARRHOEA [None]
  - DRUG INTOLERANCE [None]
  - GASTROOESOPHAGEAL REFLUX DISEASE [None]
  - HAEMATEMESIS [None]
  - HAEMORRHOIDS [None]
  - NAUSEA [None]
  - RASH [None]
  - VOMITING [None]
